FAERS Safety Report 11167158 (Version 1)
Quarter: 2015Q2

REPORT INFORMATION
  Report Type: Spontaneous
  Country: US (occurrence: None)
  Receive Date: 20150515
  Receipt Date: 20150515
  Transmission Date: 20150821
  Serious: Yes (Hospitalization, Other)
  Sender: FDA-Public Use
  Company Number: 113537

PATIENT
  Age: 31 Year
  Sex: Male
  Weight: 90.7 kg

DRUGS (1)
  1. CIMZIA [Suspect]
     Active Substance: CERTOLIZUMAB PEGOL
     Indication: CROHN^S DISEASE
     Dates: start: 20090710, end: 2014

REACTIONS (5)
  - Perirectal abscess [None]
  - Intestinal obstruction [None]
  - Drug ineffective [None]
  - Abdominal abscess [None]
  - Dyspepsia [None]

NARRATIVE: CASE EVENT DATE: 201311
